FAERS Safety Report 20869141 (Version 1)
Quarter: 2022Q2

REPORT INFORMATION
  Report Type: Spontaneous
  Country: US (occurrence: US)
  Receive Date: 20220524
  Receipt Date: 20220524
  Transmission Date: 20220721
  Serious: Yes (Other)
  Sender: FDA-Public Use
  Company Number: US-JAZZ-2022-US-016795

PATIENT
  Age: 11 Year
  Sex: Male

DRUGS (1)
  1. ERWINAZE [Suspect]
     Active Substance: ASPARAGINASE ERWINIA CHRYSANTHEMI
     Indication: Acute lymphocytic leukaemia
     Route: 030

REACTIONS (20)
  - Haematochezia [Unknown]
  - Seizure [Unknown]
  - Musculoskeletal stiffness [Unknown]
  - Asthenia [Unknown]
  - Paraesthesia [Unknown]
  - Contusion [Unknown]
  - Chest discomfort [Unknown]
  - Injection site pain [Unknown]
  - Dyspnoea [Unknown]
  - Chills [Unknown]
  - Confusional state [Unknown]
  - Pain in extremity [Unknown]
  - Headache [Unknown]
  - Abdominal pain upper [Unknown]
  - Pyrexia [Unknown]
  - Mouth haemorrhage [Unknown]
  - Blood urine present [Unknown]
  - Epistaxis [Unknown]
  - Nausea [Unknown]
  - Vomiting [Unknown]
